FAERS Safety Report 22152219 (Version 1)
Quarter: 2023Q1

REPORT INFORMATION
  Report Type: Spontaneous
  Country: CN (occurrence: CN)
  Receive Date: 20230329
  Receipt Date: 20230329
  Transmission Date: 20230418
  Serious: Yes (Other)
  Sender: FDA-Public Use
  Company Number: CN-009507513-2303CHN008285

PATIENT
  Sex: Female
  Weight: 67 kg

DRUGS (4)
  1. CILASTATIN SODIUM\IMIPENEM [Suspect]
     Active Substance: CILASTATIN SODIUM\IMIPENEM
     Indication: Cerebral haemorrhage
     Dosage: 0.5 G; EVERY 6 HOURS
     Route: 041
     Dates: start: 20230220, end: 20230221
  2. CEFOPERAZONE SODIUM\SULBACTAM SODIUM [Suspect]
     Active Substance: CEFOPERAZONE SODIUM\SULBACTAM SODIUM
     Indication: Cerebral haemorrhage
     Dosage: 3 G; EVERY 8 HOURS
     Route: 041
     Dates: start: 20230218, end: 20230220
  3. SODIUM CHLORIDE [Concomitant]
     Active Substance: SODIUM CHLORIDE
     Dosage: 100 MILLILITER, EVERY 8 HOURS
     Route: 041
     Dates: start: 20230218
  4. SODIUM CHLORIDE [Concomitant]
     Active Substance: SODIUM CHLORIDE
     Dosage: 100 MILLILITER, EVERY 6 HOURS
     Route: 041
     Dates: start: 20230220

REACTIONS (3)
  - Cerebral haemorrhage [Unknown]
  - Platelet count decreased [Recovering/Resolving]
  - Product use in unapproved indication [Unknown]

NARRATIVE: CASE EVENT DATE: 20230201
